FAERS Safety Report 14007645 (Version 1)
Quarter: 2017Q3

REPORT INFORMATION
  Report Type: Spontaneous
  Country: US (occurrence: None)
  Receive Date: 20170924
  Receipt Date: 20170924
  Transmission Date: 20171128
  Serious: No
  Sender: FDA-Public Use
  Company Number: None

PATIENT
  Sex: Female

DRUGS (1)
  1. SUTENT [Suspect]
     Active Substance: SUNITINIB MALATE
     Indication: PRODUCT USED FOR UNKNOWN INDICATION
     Dosage: 37.5 MG ONCE DAILY FOR 2 WEEKS ON, THEN 1 WEEK OFF PO
     Route: 048
     Dates: start: 20170317, end: 20170918

REACTIONS (2)
  - Haemoglobin decreased [None]
  - Dialysis [None]
